FAERS Safety Report 4861629-X (Version None)
Quarter: 2005Q4

REPORT INFORMATION
  Report Type: 
  Country: None (occurrence: None)
  Receive Date: 20051129
  Receipt Date: 20050725
  Transmission Date: 20060501
  Serious: Yes (Hospitalization, Other)
  Sender: FDA-Public Use
  Company Number: WAES 0507USA03887

PATIENT
  Age: 66 Year
  Sex: Female
  Weight: 87.5442 kg

DRUGS (23)
  1. VYTORIN [Suspect]
     Indication: HYPERLIPIDAEMIA
     Dosage: SEE IMAGE
     Route: 048
     Dates: start: 20041201, end: 20050430
  2. VYTORIN [Suspect]
     Indication: HYPERLIPIDAEMIA
     Dosage: SEE IMAGE
     Route: 048
     Dates: start: 20050301, end: 20050601
  3. VYTORIN [Suspect]
     Indication: HYPERLIPIDAEMIA
     Dosage: SEE IMAGE
     Route: 048
     Dates: start: 20050601
  4. AVANDIA [Concomitant]
  5. BEN-A-HIST [Concomitant]
  6. CATAPRES [Concomitant]
  7. FOSAMAX [Concomitant]
  8. GLUCOVANCE [Concomitant]
  9. HYDRODIURIL [Concomitant]
  10. LASIX [Concomitant]
  11. PATANOL [Concomitant]
  12. SINGULAIR [Concomitant]
  13. SYNTHROID [Concomitant]
  14. TIAZAC [Concomitant]
  15. TRICOR [Concomitant]
  16. TYLENOL [Concomitant]
  17. VASOTEC [Concomitant]
  18. ASCORBIC ACID [Concomitant]
  19. CALCIUM GLUCONATE [Concomitant]
  20. OMEGA-3 MARINE TRIGLYCERIDES [Concomitant]
  21. POTASSIUM [Concomitant]
  22. VITAMIN D [Concomitant]
  23. VITAMINS [Concomitant]

REACTIONS (1)
  - PANCREATITIS ACUTE [None]
